FAERS Safety Report 8204540-9 (Version None)
Quarter: 2012Q1

REPORT INFORMATION
  Report Type: 
  Country: None (occurrence: None)
  Receive Date: 20120313
  Receipt Date: 20120307
  Transmission Date: 20120608
  Serious: Yes (Other)
  Sender: FDA-Public Use
  Company Number: US-PFIZER INC-2012062028

PATIENT
  Sex: Male

DRUGS (5)
  1. NORVASC [Concomitant]
     Dosage: UNK
  2. NEURONTIN [Suspect]
     Dosage: 800, FOUR TIMES DAILY
  3. LANTUS [Concomitant]
     Dosage: UNK
  4. CYMBALTA [Concomitant]
     Dosage: UNK
  5. HUMALOG [Concomitant]
     Dosage: UNK

REACTIONS (1)
  - DIABETIC COMA [None]
